FAERS Safety Report 5810588-1 (Version None)
Quarter: 2008Q3

REPORT INFORMATION
  Report Type: 
  Country: None (occurrence: None)
  Receive Date: 20080715
  Receipt Date: 20080703
  Transmission Date: 20090109
  Serious: Yes (Other)
  Sender: FDA-Public Use
  Company Number: JP-PFIZER INC-2008056475

PATIENT
  Age: 16 Year
  Sex: Female

DRUGS (2)
  1. SOLANAX [Suspect]
     Route: 048
  2. ALL OTHER THERAPEUTIC PRODUCTS [Suspect]

REACTIONS (2)
  - DYSPNOEA [None]
  - SUICIDE ATTEMPT [None]
